FAERS Safety Report 17557921 (Version 4)
Quarter: 2020Q2

REPORT INFORMATION
  Report Type: Report from Study
  Country: US (occurrence: US)
  Receive Date: 20200319
  Receipt Date: 20200504
  Transmission Date: 20200713
  Serious: Yes (Other)
  Sender: FDA-Public Use
  Company Number: US-ROCHE-2565855

PATIENT
  Sex: Female

DRUGS (1)
  1. OCREVUS [Suspect]
     Active Substance: OCRELIZUMAB
     Indication: RELAPSING-REMITTING MULTIPLE SCLEROSIS
     Dosage: ONGOING:YES
     Route: 065
     Dates: start: 20190606

REACTIONS (3)
  - Decreased appetite [Not Recovered/Not Resolved]
  - Incontinence [Not Recovered/Not Resolved]
  - Gastrointestinal bacterial overgrowth [Not Recovered/Not Resolved]
